FAERS Safety Report 6802734-8 (Version None)
Quarter: 2010Q2

REPORT INFORMATION
  Report Type: 
  Country: None (occurrence: None)
  Receive Date: 20100628
  Receipt Date: 20100617
  Transmission Date: 20101027
  Serious: No
  Sender: FDA-Public Use
  Company Number: DE-SANOFI-AVENTIS-2010SA001028

PATIENT
  Age: 16 Year
  Sex: Female

DRUGS (2)
  1. ARAVA [Suspect]
     Route: 048
     Dates: start: 20091001, end: 20091101
  2. MONOCLONAL ANTIBODIES [Suspect]
     Route: 058
     Dates: start: 20091001, end: 20091101

REACTIONS (3)
  - DRUG EXPOSURE BEFORE PREGNANCY [None]
  - LIVER FUNCTION TEST ABNORMAL [None]
  - NAUSEA [None]
